FAERS Safety Report 15239442 (Version 1)
Quarter: 2018Q3

REPORT INFORMATION
  Report Type: Spontaneous
  Country: GB (occurrence: GB)
  Receive Date: 20180803
  Receipt Date: 20180803
  Transmission Date: 20181010
  Serious: Yes (Other)
  Sender: FDA-Public Use
  Company Number: GB-TEVA-2018-GB-933594

PATIENT
  Age: 86 Year

DRUGS (1)
  1. WARFARIN [Suspect]
     Active Substance: WARFARIN
     Indication: HEART RATE IRREGULAR
     Route: 065

REACTIONS (2)
  - Fatigue [Unknown]
  - Dyspnoea [Unknown]
